FAERS Safety Report 11348439 (Version 4)
Quarter: 2016Q4

REPORT INFORMATION
  Report Type: Report from Study
  Country: JP (occurrence: JP)
  Receive Date: 20150806
  Receipt Date: 20161108
  Transmission Date: 20170206
  Serious: Yes (Hospitalization, Other)
  Sender: FDA-Public Use
  Company Number: JP-JNJFOC-20130900597

PATIENT
  Age: 58 Year
  Sex: Male

DRUGS (19)
  1. NORVIR [Suspect]
     Active Substance: RITONAVIR
     Indication: HIV INFECTION
     Route: 048
     Dates: start: 20110527
  2. ADALAT CC [Concomitant]
     Active Substance: NIFEDIPINE
     Indication: HYPERTENSION
     Route: 048
     Dates: start: 20100401, end: 20110121
  3. ZIAGEN [Concomitant]
     Active Substance: ABACAVIR SULFATE
     Route: 048
     Dates: start: 20050401, end: 20060528
  4. NEXIUM [Concomitant]
     Active Substance: ESOMEPRAZOLE MAGNESIUM
     Indication: GASTRIC ULCER
     Route: 048
     Dates: start: 20141017, end: 20141030
  5. AMLODIN [Concomitant]
     Active Substance: AMLODIPINE BESYLATE
     Indication: HYPERTENSION
     Route: 048
     Dates: start: 20120302, end: 20121221
  6. EPIVIR [Concomitant]
     Active Substance: LAMIVUDINE
     Route: 048
     Dates: start: 20050401, end: 20060528
  7. TEPRENONE [Concomitant]
     Active Substance: TEPRENONE
     Indication: GASTRIC ULCER
     Route: 048
     Dates: start: 20141017, end: 20141030
  8. PREZISTA [Suspect]
     Active Substance: DARUNAVIR ETHANOLATE
     Indication: HIV INFECTION
     Dosage: 400 MG 2 TABLETS
     Route: 048
     Dates: start: 20100312
  9. EPZICOM [Suspect]
     Active Substance: ABACAVIR SULFATE\LAMIVUDINE
     Indication: HIV INFECTION
     Route: 048
     Dates: start: 20060529
  10. LIPITOR [Concomitant]
     Active Substance: ATORVASTATIN CALCIUM
     Indication: HYPERLIPIDAEMIA
     Route: 048
     Dates: start: 20100401
  11. REYATAZ [Concomitant]
     Active Substance: ATAZANAVIR SULFATE
     Route: 048
     Dates: start: 20060529, end: 20100311
  12. MICAMLO [Concomitant]
     Active Substance: AMLODIPINE BESYLATE\TELMISARTAN
     Indication: HYPERTENSION
     Route: 048
     Dates: start: 20131004
  13. NORVIR [Suspect]
     Active Substance: RITONAVIR
     Indication: HIV INFECTION
     Route: 048
     Dates: start: 20060529, end: 20110526
  14. NEXIUM [Concomitant]
     Active Substance: ESOMEPRAZOLE MAGNESIUM
     Indication: GASTRIC ULCER
     Route: 048
     Dates: start: 20150120, end: 20150722
  15. TEPRENONE [Concomitant]
     Active Substance: TEPRENONE
     Indication: GASTRIC ULCER
     Route: 048
     Dates: start: 20150120, end: 20150211
  16. VITAMINS NOS [Concomitant]
     Active Substance: VITAMINS
     Indication: THROMBOANGIITIS OBLITERANS
     Route: 048
     Dates: start: 20100401
  17. KALETRA [Concomitant]
     Active Substance: LOPINAVIR\RITONAVIR
     Route: 048
     Dates: start: 20050401, end: 20060528
  18. AMLODIN [Concomitant]
     Active Substance: AMLODIPINE BESYLATE
     Indication: HYPERTENSION
     Route: 048
     Dates: start: 20110122, end: 20120301
  19. AMLODIN [Concomitant]
     Active Substance: AMLODIPINE BESYLATE
     Indication: HYPERTENSION
     Route: 048
     Dates: start: 20121222, end: 20131003

REACTIONS (6)
  - Gallbladder polyp [Recovering/Resolving]
  - Oropharyngeal cancer [Not Recovered/Not Resolved]
  - Urine cytology abnormal [Unknown]
  - Cholelithiasis [Recovering/Resolving]
  - Gastric ulcer [Recovering/Resolving]
  - Proteinuria [Not Recovered/Not Resolved]

NARRATIVE: CASE EVENT DATE: 20100423
